FAERS Safety Report 8605408-6 (Version None)
Quarter: 2012Q3

REPORT INFORMATION
  Report Type: 
  Country: None (occurrence: None)
  Receive Date: 20120807
  Receipt Date: 20120724
  Transmission Date: 20120928
  Serious: Yes (Hospitalization)
  Sender: FDA-Public Use
  Company Number: 12001644

PATIENT
  Age: 77 Year
  Sex: Female

DRUGS (13)
  1. KLOR-CON [Suspect]
     Indication: DIURETIC THERAPY
     Dosage: 10 MEQ, QD, ORAL
     Route: 048
     Dates: start: 20120401
  2. KLOR-CON [Suspect]
     Indication: DIURETIC THERAPY
     Dosage: 10 MEQ, QD, ORAL
     Route: 048
     Dates: end: 20120401
  3. DIGOXIN [Concomitant]
  4. CELEXA [Concomitant]
  5. SIMVASTATIN [Concomitant]
  6. ESTRADIOL [Concomitant]
  7. UNSPECIFIED BLOOD PRESSURE MEDICATION [Concomitant]
  8. CALCIUM CARBONATE [Concomitant]
  9. FUROSEMIDE [Concomitant]
  10. LEVOTHYROXINE SODIUM [Concomitant]
  11. ASPIRIN [Concomitant]
  12. MAGNESIUM (MAGNESIUM) [Concomitant]
  13. ALLOPURINOL [Concomitant]

REACTIONS (4)
  - LOSS OF CONSCIOUSNESS [None]
  - OEDEMA [None]
  - DRUG INEFFECTIVE [None]
  - BLOOD MAGNESIUM DECREASED [None]
